FAERS Safety Report 9199392 (Version 1)
Quarter: 2013Q1

REPORT INFORMATION
  Report Type: Spontaneous
  Country: US (occurrence: US)
  Receive Date: 20130329
  Receipt Date: 20130329
  Transmission Date: 20140127
  Serious: No
  Sender: FDA-Public Use
  Company Number: US-009507513-1303USA011309

PATIENT
  Sex: Female

DRUGS (1)
  1. NEXPLANON [Suspect]
     Dosage: 1 IMPLANT , STANDARD DOSE
     Route: 059
     Dates: start: 20130228, end: 20130305

REACTIONS (1)
  - Implant site infection [Recovering/Resolving]
